FAERS Safety Report 10230797 (Version 1)
Quarter: 2014Q2

REPORT INFORMATION
  Report Type: Spontaneous
  Country: US (occurrence: None)
  Receive Date: 20140610
  Receipt Date: 20140610
  Transmission Date: 20141212
  Serious: Yes (Disabling, Other)
  Sender: FDA-Public Use
  Company Number: None

PATIENT
  Age: 70 Year
  Sex: Female
  Weight: 77.11 kg

DRUGS (1)
  1. XARELTO 20 MG JOLLC, GURABO PR [Suspect]
     Indication: ATRIAL FIBRILLATION
     Dosage: 1 TABLET ONCE DAILY TAKEN BY MOUTH
     Route: 048
     Dates: start: 20131218, end: 20140105

REACTIONS (3)
  - Haematochezia [None]
  - Blood urine present [None]
  - Deafness unilateral [None]
